FAERS Safety Report 23760525 (Version 1)
Quarter: 2024Q2

REPORT INFORMATION
  Report Type: Spontaneous
  Country: US (occurrence: US)
  Receive Date: 20240419
  Receipt Date: 20240419
  Transmission Date: 20240715
  Serious: Yes (Hospitalization)
  Sender: FDA-Public Use
  Company Number: US-HALEON-2167704

PATIENT
  Age: 58 Year
  Sex: Female
  Weight: 86 kg

DRUGS (10)
  1. TERBINAFINE HYDROCHLORIDE [Suspect]
     Active Substance: TERBINAFINE HYDROCHLORIDE
     Indication: Product used for unknown indication
  2. ALBUTEROL [Concomitant]
     Active Substance: ALBUTEROL
     Route: 055
  3. ARIPIPRAZOLE [Suspect]
     Active Substance: ARIPIPRAZOLE
     Indication: Product used for unknown indication
  4. ASPIRIN [Concomitant]
     Active Substance: ASPIRIN
  5. CHOLECALCIFEROL [Concomitant]
     Active Substance: CHOLECALCIFEROL
  6. FERROUS SULFATE [Concomitant]
     Active Substance: FERROUS SULFATE
  7. LISINOPRIL [Concomitant]
     Active Substance: LISINOPRIL
  8. LORAZEPAM [Concomitant]
     Active Substance: LORAZEPAM
  9. METOPROLOL TARTRATE [Concomitant]
     Active Substance: METOPROLOL TARTRATE
  10. PANTOPRAZOLE [Concomitant]
     Active Substance: PANTOPRAZOLE

REACTIONS (4)
  - Drug interaction [Unknown]
  - Depression [Unknown]
  - Anxiety [Unknown]
  - Akathisia [Unknown]
